FAERS Safety Report 5319453-X (Version None)
Quarter: 2007Q2

REPORT INFORMATION
  Report Type: 
  Country: None (occurrence: None)
  Receive Date: 20070508
  Receipt Date: 20070428
  Transmission Date: 20071010
  Serious: Yes (Other)
  Sender: FDA-Public Use
  Company Number: US-PFIZER INC-2007018790

PATIENT
  Sex: Female
  Weight: 77.1 kg

DRUGS (15)
  1. LIPITOR [Suspect]
     Indication: BLOOD CHOLESTEROL INCREASED
  2. LIPITOR [Suspect]
     Indication: HYPERLIPIDAEMIA
  3. LYRICA [Suspect]
     Indication: NEUROPATHY PERIPHERAL
  4. INSULIN [Concomitant]
     Indication: DIABETES MELLITUS
  5. PREVACID [Concomitant]
     Indication: GASTROOESOPHAGEAL REFLUX DISEASE
  6. NOVOLOG [Concomitant]
  7. INSULIN DETEMIR [Concomitant]
  8. DITROPAN [Concomitant]
  9. LISINOPRIL W/HYDROCHLOROTHIAZIDE [Concomitant]
  10. ACETYLSALICYLIC ACID SRT [Concomitant]
  11. CALCIUM CHLORIDE [Concomitant]
  12. FISH OIL [Concomitant]
  13. FOLIC ACID [Concomitant]
  14. VITAMIN D [Concomitant]
  15. VITAMIN B-12 [Concomitant]

REACTIONS (3)
  - EYE OPERATION [None]
  - MYALGIA [None]
  - VISION BLURRED [None]
